FAERS Safety Report 7267148-8 (Version None)
Quarter: 2011Q1

REPORT INFORMATION
  Report Type: 
  Country: None (occurrence: None)
  Receive Date: 20110201
  Receipt Date: 20110124
  Transmission Date: 20110831
  Serious: Yes (Hospitalization)
  Sender: FDA-Public Use
  Company Number: KR-ELI_LILLY_AND_COMPANY-KR201101000889

PATIENT
  Sex: Male
  Weight: 63 kg

DRUGS (3)
  1. DEXAMETHASONE [Concomitant]
     Dosage: 4 MG, 2/D
     Route: 048
     Dates: start: 20100926, end: 20100927
  2. FOLIC ACID [Concomitant]
     Dosage: 1 MG, DAILY (1/D)
     Route: 048
     Dates: start: 20100926, end: 20101018
  3. PEMETREXED [Suspect]
     Indication: NON-SMALL CELL LUNG CANCER
     Dosage: 875 MG, DAY ONE EVERY 21 DAYS
     Route: 042
     Dates: start: 20100926, end: 20100926

REACTIONS (2)
  - VOCAL CORD PARALYSIS [None]
  - MUSCULOSKELETAL CHEST PAIN [None]
